FAERS Safety Report 7887914-5 (Version None)
Quarter: 2011Q4

REPORT INFORMATION
  Report Type: 
  Country: None (occurrence: None)
  Receive Date: 20111103
  Receipt Date: 20111031
  Transmission Date: 20120403
  Serious: Yes (Other)
  Sender: FDA-Public Use
  Company Number: US-TEVA-307392USA

PATIENT
  Age: 81 Year

DRUGS (2)
  1. PROPAFENONE HCL [Suspect]
  2. QUINIDINE HCL [Interacting]

REACTIONS (2)
  - DRUG INTERACTION [None]
  - SYNCOPE [None]
